FAERS Safety Report 19577600 (Version 4)
Quarter: 2021Q4

REPORT INFORMATION
  Report Type: Spontaneous
  Country: US (occurrence: US)
  Receive Date: 20210719
  Receipt Date: 20211108
  Transmission Date: 20220303
  Serious: No
  Sender: FDA-Public Use
  Company Number: US-GLAXOSMITHKLINE-US2021152011

PATIENT
  Age: 74 Year
  Sex: Female

DRUGS (4)
  1. ZEJULA [Suspect]
     Active Substance: NIRAPARIB
     Indication: Ovarian cancer
     Dosage: 200 MG, QD
     Route: 048
     Dates: start: 20210628
  2. ZEJULA [Suspect]
     Active Substance: NIRAPARIB
     Dosage: 100 MG, QD
  3. ZEJULA [Suspect]
     Active Substance: NIRAPARIB
     Dosage: 200 MG, QD
  4. ZEJULA [Suspect]
     Active Substance: NIRAPARIB
     Dosage: 100 MG, QD
     Route: 048

REACTIONS (8)
  - Insomnia [Recovered/Resolved with Sequelae]
  - Dry mouth [Recovered/Resolved with Sequelae]
  - Constipation [Unknown]
  - Fatigue [Unknown]
  - Asthenia [Unknown]
  - Hair growth abnormal [Unknown]
  - Platelet count decreased [Unknown]
  - Expired product administered [Unknown]

NARRATIVE: CASE EVENT DATE: 20210601
